FAERS Safety Report 7797193-5 (Version None)
Quarter: 2011Q4

REPORT INFORMATION
  Report Type: 
  Country: None (occurrence: None)
  Receive Date: 20111005
  Receipt Date: 20110628
  Transmission Date: 20120403
  Serious: Yes (Death)
  Sender: FDA-Public Use
  Company Number: US-PFIZER INC-2008153404

PATIENT
  Age: 44 Year
  Sex: Male

DRUGS (4)
  1. LISINOPRIL [Suspect]
     Dosage: UNK
     Route: 048
     Dates: end: 20070101
  2. METFORMIN HCL [Suspect]
     Dosage: UNK
     Route: 048
     Dates: end: 20070101
  3. PIOGLITAZONE [Suspect]
     Dosage: UNK
     Route: 048
     Dates: end: 20070101
  4. GLIPIZIDE [Suspect]
     Dosage: UNK
     Route: 048
     Dates: end: 20070101

REACTIONS (1)
  - COMPLETED SUICIDE [None]
